FAERS Safety Report 11786642 (Version 2)
Quarter: 2015Q4

REPORT INFORMATION
  Report Type: Spontaneous
  Country: PE (occurrence: PE)
  Receive Date: 20151130
  Receipt Date: 20151207
  Transmission Date: 20160305
  Serious: Yes (Death)
  Sender: FDA-Public Use
  Company Number: PE-PFIZER INC-2015406561

PATIENT
  Age: 28 Year
  Sex: Male

DRUGS (1)
  1. DIFLUCAN [Suspect]
     Active Substance: FLUCONAZOLE
     Indication: PULMONARY MYCOSIS
     Dosage: UNK

REACTIONS (2)
  - Fungal infection [Fatal]
  - Condition aggravated [Fatal]
